FAERS Safety Report 6286380-3 (Version None)
Quarter: 2009Q3

REPORT INFORMATION
  Report Type: 
  Country: None (occurrence: None)
  Receive Date: 20090724
  Receipt Date: 20090710
  Transmission Date: 20100115
  Serious: Yes (Hospitalization)
  Sender: FDA-Public Use
  Company Number: 8047723

PATIENT
  Age: 62 Year
  Sex: Female

DRUGS (7)
  1. CIMZIA [Suspect]
     Indication: CROHN'S DISEASE
     Dosage: 400 MG SC
     Route: 058
     Dates: start: 20081201
  2. TOPROL-XL [Concomitant]
  3. NORVASC [Concomitant]
  4. THYROIDSYNTHROID [Concomitant]
  5. ATIVAN [Concomitant]
  6. AMBIEN CR [Concomitant]
  7. MULTI-VITAMINS [Concomitant]

REACTIONS (6)
  - ASTHENIA [None]
  - DIARRHOEA [None]
  - FATIGUE [None]
  - FISTULA [None]
  - HERNIA REPAIR [None]
  - INCISION SITE INFECTION [None]
